FAERS Safety Report 21930594 (Version 4)
Quarter: 2023Q1

REPORT INFORMATION
  Report Type: Spontaneous
  Country: DE (occurrence: DE)
  Receive Date: 20230131
  Receipt Date: 20230223
  Transmission Date: 20230418
  Serious: Yes (Hospitalization, Other)
  Sender: FDA-Public Use
  Company Number: DE-002147023-NVSC2022DE024466

PATIENT
  Age: 64 Year
  Sex: Female
  Weight: 60 kg

DRUGS (55)
  1. ATORVASTATIN\EZETIMIBE [Suspect]
     Active Substance: ATORVASTATIN\EZETIMIBE
     Indication: Hyperlipidaemia
     Dosage: 1 DOSAGE FORM, QD
     Route: 065
     Dates: start: 2017, end: 2018
  2. METOPROLOL [Suspect]
     Active Substance: METOPROLOL
     Indication: Product used for unknown indication
     Dosage: 47.5 MG QD (DAILY MORNING))
     Route: 065
  3. METOPROLOL [Suspect]
     Active Substance: METOPROLOL
     Dosage: 47.5 MG, (HALF TABLET) (DAILY EVENING)
     Route: 065
  4. METOPROLOL [Suspect]
     Active Substance: METOPROLOL
     Dosage: 47.5 MG QD (DAILY MORNING))
     Route: 065
  5. METOPROLOL [Suspect]
     Active Substance: METOPROLOL
     Dosage: 47.5 MG, (HALF TABLET) (DAILY EVENING)
     Route: 065
  6. VALSARTAN [Suspect]
     Active Substance: VALSARTAN
     Indication: Hypertension
     Dosage: 160 MG, BID (ONCE IN THE MORNING AT ABOUT 8 AM AND ONCE IN THE EVENING AT ABOUT 8 PM)
     Route: 065
     Dates: start: 20140602
  7. VALSARTAN [Suspect]
     Active Substance: VALSARTAN
     Indication: Hypertension
     Dosage: 160 MG, BID (ONCE IN THE MORNING AT ABOUT 8 AM AND ONCE IN THE EVENING AT ABOUT 8 PM)
     Route: 065
  8. AMLODIPINE [Suspect]
     Active Substance: AMLODIPINE BESYLATE
     Indication: Product used for unknown indication
     Dosage: 10 MG
     Route: 065
  9. AMLODIPINE [Suspect]
     Active Substance: AMLODIPINE BESYLATE
     Dosage: 10 MG
     Route: 065
  10. DICLOFENAC [Suspect]
     Active Substance: DICLOFENAC
     Indication: Oedema peripheral
     Dosage: 120 G
     Route: 065
     Dates: start: 2018
  11. DICLOFENAC [Suspect]
     Active Substance: DICLOFENAC
     Indication: Oedema peripheral
  12. VALSARTAN [Suspect]
     Active Substance: VALSARTAN
     Indication: Hypertension
     Dosage: 160 MG
     Route: 065
     Dates: end: 2018
  13. VALSARTAN [Suspect]
     Active Substance: VALSARTAN
     Indication: Hypertension
     Dosage: 160 MG
     Route: 065
     Dates: end: 2018
  14. DICLOFENAC [Suspect]
     Active Substance: DICLOFENAC
     Indication: Product used for unknown indication
     Dosage: UNK
     Route: 065
  15. VALSARTAN [Suspect]
     Active Substance: VALSARTAN
     Indication: Hypertension
     Dosage: UNK
     Route: 065
  16. VALSARTAN [Suspect]
     Active Substance: VALSARTAN
     Indication: Hypertension
     Dosage: 160 MG
     Route: 065
     Dates: start: 20140602
  17. VALSARTAN [Suspect]
     Active Substance: VALSARTAN
     Dosage: 160 MG, QD
     Route: 065
     Dates: start: 2012
  18. VALSARTAN [Suspect]
     Active Substance: VALSARTAN
     Dosage: UNK
     Route: 065
  19. CANDESARTAN ABZ [Concomitant]
     Indication: Hypertension
     Dosage: UNK, QD ((ONCE IN THE MORNING)
     Route: 065
     Dates: start: 2018
  20. CANDESARTAN ABZ [Concomitant]
     Indication: Hypertension
  21. INDAPAMIDE [Concomitant]
     Active Substance: INDAPAMIDE
     Indication: Product used for unknown indication
     Dosage: 2.5 MG, QD (ONCE IN THE MORNING (1-0-0)
     Route: 065
  22. AMLODIPINE [Concomitant]
     Active Substance: AMLODIPINE BESYLATE
     Indication: Product used for unknown indication
     Dosage: 5 MG, QD, DAILY EVENING
     Route: 065
  23. AMLODIPINE [Concomitant]
     Active Substance: AMLODIPINE BESYLATE
     Dosage: 5 MG, QD, DAILY EVENING
     Route: 065
  24. TORSEMIDE [Concomitant]
     Active Substance: TORSEMIDE
     Indication: Product used for unknown indication
     Dosage: 5 MG, QD (5 MG DAILY MORNING)
     Route: 065
  25. AMLODIPINE BESYLATE [Concomitant]
     Active Substance: AMLODIPINE BESYLATE
     Indication: Product used for unknown indication
     Dosage: 5 MG
     Route: 065
     Dates: end: 2019
  26. METOPROLOL SUCCINATE [Concomitant]
     Active Substance: METOPROLOL SUCCINATE
     Indication: Product used for unknown indication
     Dosage: UNK
     Route: 065
  27. METOPROLOL SUCCINATE [Concomitant]
     Active Substance: METOPROLOL SUCCINATE
     Dosage: UNK
     Route: 065
  28. PANTOPRAZOLE SODIUM [Concomitant]
     Active Substance: PANTOPRAZOLE SODIUM
     Indication: Product used for unknown indication
     Dosage: 20 MG
     Route: 065
  29. PANTOPRAZOLE [Concomitant]
     Active Substance: PANTOPRAZOLE
     Indication: Product used for unknown indication
     Dosage: 40 MG, BID, (ONCE IN THE MORNING, ONCE IN THE EVENING (1-0-1)
     Route: 065
  30. PANTOPRAZOLE [Concomitant]
     Active Substance: PANTOPRAZOLE
     Dosage: 40 MG, QD (ONCE IN THE MORNING (1-0-0)
     Route: 065
  31. ATORVASTATIN [Concomitant]
     Active Substance: ATORVASTATIN
     Indication: Product used for unknown indication
     Dosage: 20 MG, QD (DAILY MORNING)
     Route: 065
     Dates: start: 2016
  32. ATORVASTATIN [Concomitant]
     Active Substance: ATORVASTATIN
     Dosage: 40 MG
     Route: 065
     Dates: start: 202009
  33. CANDESARTAN CILEXETIL [Concomitant]
     Active Substance: CANDESARTAN CILEXETIL
     Indication: Hypertension
     Dosage: 6 MG
     Route: 065
     Dates: start: 2018
  34. CANDESARTAN CILEXETIL [Concomitant]
     Active Substance: CANDESARTAN CILEXETIL
     Indication: Hypertension
  35. BEZAFIBRATE 1A PHARMA GMBH [Concomitant]
     Indication: Product used for unknown indication
     Dosage: 400 MG
     Route: 065
     Dates: start: 2018
  36. HYDROCHLOROTHIAZIDE\VALSARTAN [Concomitant]
     Active Substance: HYDROCHLOROTHIAZIDE\VALSARTAN
     Indication: Product used for unknown indication
     Dosage: 160 MG/12.5 MG, QD, DAILY AT MORNING
     Route: 065
  37. HYDROCHLOROTHIAZIDE\VALSARTAN [Concomitant]
     Active Substance: HYDROCHLOROTHIAZIDE\VALSARTAN
     Dosage: UNK, QD (160 MG/12.5 MG, QD, DAILY AT MORNING)
     Route: 065
  38. LERCANIDIPINE [Concomitant]
     Active Substance: LERCANIDIPINE
     Indication: Product used for unknown indication
     Dosage: 10 MG, BID, (ONCE IN THE MORNING, ONCE IN THE EVENING (1-0-1)
     Route: 065
  39. LERCANIDIPINE [Concomitant]
     Active Substance: LERCANIDIPINE
     Dosage: 10 MG, BID (ONCE IN THE MORNING, ONCE IN THE EVENING (1-0-1)
     Route: 065
  40. INDAPAMIDE [Concomitant]
     Active Substance: INDAPAMIDE
     Indication: Product used for unknown indication
     Dosage: 1 DOSAGE FORM, QD
     Route: 065
     Dates: start: 201910
  41. BETABLOCK [Concomitant]
     Indication: Hypertension
     Dosage: UNK (INCREASED IN THE MORNING)
     Route: 065
     Dates: start: 201511
  42. BETABLOCK [Concomitant]
     Indication: Hypertension
     Dosage: UNK
     Route: 065
  43. BETABLOCK [Concomitant]
     Dosage: UNK
     Route: 065
  44. BETABLOCK [Concomitant]
     Dosage: UNK (INCREASED IN THE MORNING)
     Route: 065
     Dates: start: 2015
  45. CANDESARTAN [Concomitant]
     Active Substance: CANDESARTAN
     Indication: Product used for unknown indication
     Dosage: 32 MG, QD (ONCE IN THE MORNING (1-0-0)
     Route: 065
  46. CANDESARTAN [Concomitant]
     Active Substance: CANDESARTAN
     Dosage: 32 MG, QD (ONCE IN THE MORNING (1-0-0)
     Route: 065
  47. RAMIPRIL [Concomitant]
     Active Substance: RAMIPRIL
     Indication: Hypertension
     Dosage: UNK
     Route: 065
     Dates: start: 2018, end: 2018
  48. RAMIPRIL [Concomitant]
     Active Substance: RAMIPRIL
     Indication: Hypertension
  49. METOPROLOL SUCCINATE [Concomitant]
     Active Substance: METOPROLOL SUCCINATE
     Indication: Product used for unknown indication
     Dosage: 47.5 MG, QD (AT MORNING)
     Route: 065
  50. ATORVASTATIN [Concomitant]
     Active Substance: ATORVASTATIN
     Indication: Product used for unknown indication
     Dosage: 20 MG, QD (ONCE DAILY IN THE EVENING (0-0-1)
     Route: 065
  51. CANDESARTAN CILEXETIL\HYDROCHLOROTHIAZIDE [Concomitant]
     Active Substance: CANDESARTAN CILEXETIL\HYDROCHLOROTHIAZIDE
     Indication: Product used for unknown indication
     Dosage: UNK
     Route: 065
  52. CANDESARTAN CILEXETIL\HYDROCHLOROTHIAZIDE [Concomitant]
     Active Substance: CANDESARTAN CILEXETIL\HYDROCHLOROTHIAZIDE
     Dosage: UNKNOWN
  53. PANTOPRAZOLE SODIUM [Concomitant]
     Active Substance: PANTOPRAZOLE SODIUM
     Indication: Product used for unknown indication
     Dosage: UNK ONCE IN THE EVENING
     Route: 065
  54. PANTOPRAZOLE SODIUM [Concomitant]
     Active Substance: PANTOPRAZOLE SODIUM
     Dosage: UNK, QD (UNK ONCE IN THE EVENING)
  55. AMLODIPINE [Concomitant]
     Active Substance: AMLODIPINE BESYLATE
     Indication: Product used for unknown indication
     Dosage: 5 MG
     Route: 065

REACTIONS (68)
  - Hyperlipidaemia [Not Recovered/Not Resolved]
  - Headache [Unknown]
  - Scar [Unknown]
  - Wheezing [Unknown]
  - Oedema peripheral [Unknown]
  - Asthma [Unknown]
  - Dyspepsia [Unknown]
  - Eczema [Unknown]
  - Gastrooesophageal reflux disease [Recovering/Resolving]
  - Fungal oesophagitis [Unknown]
  - Limb discomfort [Unknown]
  - Hyperhomocysteinaemia [Unknown]
  - Ill-defined disorder [Unknown]
  - Dysphagia [Unknown]
  - Oropharyngeal pain [Unknown]
  - Tricuspid valve incompetence [Unknown]
  - Chronic gastritis [Unknown]
  - Nasopharyngitis [Recovering/Resolving]
  - Paraesthesia [Unknown]
  - Obstructive sleep apnoea syndrome [Unknown]
  - Haemorrhoids [Unknown]
  - Pain in extremity [Unknown]
  - Pyrexia [Recovering/Resolving]
  - Gastrointestinal stromal tumour [Recovering/Resolving]
  - Malaise [Unknown]
  - Peripheral swelling [Unknown]
  - Chest pain [Unknown]
  - Urinary incontinence [Unknown]
  - Dizziness [Unknown]
  - Bradycardia [Unknown]
  - White blood cells urine positive [Unknown]
  - Rash [Unknown]
  - Ligament rupture [Unknown]
  - Epicondylitis [Unknown]
  - Hypertensive crisis [Unknown]
  - Dyspnoea [Unknown]
  - Trigger finger [Unknown]
  - Acne [Unknown]
  - Cough [Unknown]
  - Arteriosclerosis [Unknown]
  - Hiatus hernia [Unknown]
  - Renal artery stenosis [Unknown]
  - Dysuria [Unknown]
  - Urinary tract infection [Unknown]
  - Urine odour abnormal [Unknown]
  - Torticollis [Unknown]
  - Snoring [Unknown]
  - High density lipoprotein decreased [Unknown]
  - Cholelithiasis [Unknown]
  - Throat irritation [Unknown]
  - Anxiety [Unknown]
  - Diabetes mellitus [Unknown]
  - Arthralgia [Unknown]
  - Back pain [Unknown]
  - Influenza [Recovered/Resolved]
  - Chest discomfort [Unknown]
  - Drug hypersensitivity [Unknown]
  - Abdominal distension [Unknown]
  - Arteriosclerosis coronary artery [Unknown]
  - Tenosynovitis [Unknown]
  - Insomnia [Unknown]
  - Scoliosis [Unknown]
  - Pain [Unknown]
  - Stress [Unknown]
  - Diastolic dysfunction [Unknown]
  - Hypercholesterolaemia [Unknown]
  - Pain in extremity [Unknown]
  - Muscle spasticity [Unknown]

NARRATIVE: CASE EVENT DATE: 20130801
